APPROVED DRUG PRODUCT: TRIAMCINOLONE ACETONIDE
Active Ingredient: TRIAMCINOLONE ACETONIDE
Strength: 0.1%
Dosage Form/Route: CREAM;TOPICAL
Application: A207651 | Product #002 | TE Code: AT
Applicant: ALKEM LABORATORIES LTD
Approved: Dec 26, 2017 | RLD: No | RS: No | Type: RX